FAERS Safety Report 10161908 (Version 1)
Quarter: 2014Q2

REPORT INFORMATION
  Report Type: Spontaneous
  Country: US (occurrence: None)
  Receive Date: 20140507
  Receipt Date: 20140507
  Transmission Date: 20141212
  Serious: Yes (Life-Threatening, Hospitalization)
  Sender: FDA-Public Use
  Company Number: UTC-047015

PATIENT
  Age: 30 Year
  Sex: Female
  Weight: 68.49 kg

DRUGS (2)
  1. REMODULIN [Suspect]
     Indication: PULMONARY ARTERIAL HYPERTENSION
     Dosage: 205.92 UG/KG (0.143 UG/KG, 1 IN 1 MIN), SUBCUTANEOUS
     Route: 058
     Dates: start: 20050401, end: 20110913
  2. ADCIRCA (TADALAFIL) [Concomitant]

REACTIONS (1)
  - Haemoptysis [None]
